FAERS Safety Report 13114292 (Version 1)
Quarter: 2017Q1

REPORT INFORMATION
  Report Type: Spontaneous
  Country: US (occurrence: US)
  Receive Date: 20170113
  Receipt Date: 20170113
  Transmission Date: 20170428
  Serious: No
  Sender: FDA-Public Use
  Company Number: US-ASTRAZENECA-2017SE03956

PATIENT
  Sex: Male

DRUGS (1)
  1. LYNPARZA [Suspect]
     Active Substance: OLAPARIB
     Indication: PROSTATE CANCER METASTATIC
     Route: 048
     Dates: end: 20170109

REACTIONS (7)
  - Somnolence [Unknown]
  - Myalgia [Unknown]
  - Asthenia [Unknown]
  - Back pain [Unknown]
  - Decreased appetite [Unknown]
  - Gait disturbance [Unknown]
  - Arthralgia [Unknown]
